FAERS Safety Report 5074479-9 (Version None)
Quarter: 2006Q3

REPORT INFORMATION
  Report Type: 
  Country: None (occurrence: None)
  Receive Date: 20060803
  Receipt Date: 20060720
  Transmission Date: 20061208
  Serious: Yes (Death, Hospitalization)
  Sender: FDA-Public Use
  Company Number: 06-NIP00113

PATIENT
  Age: 61 Year
  Sex: Male
  Weight: 90.7 kg

DRUGS (3)
  1. NIPENT [Suspect]
     Indication: CHRONIC LYMPHOCYTIC LEUKAEMIA
     Dosage: -- (4 MG/M2, CLD1, C2-6D1), INTRAVENOUS
     Route: 042
     Dates: start: 20060715, end: 20060715
  2. RITUXIMAB (RITUXIMAB) (RITUXIMAB) [Suspect]
     Indication: CHRONIC LYMPHOCYTIC LEUKAEMIA
     Dosage: -- (100 MG, C1D1), INTRAVENOUS
     Route: 042
     Dates: start: 20060614, end: 20060614
  3. CYCLOPHOSPHAMIDE [Suspect]
     Indication: CHRONIC LYMPHOCYTIC LEUKAEMIA
     Dosage: -- (600 MG/M2, C1D1, CYCLES 2-6, DAY 1), INTRAVENOUS
     Route: 042
     Dates: start: 20060615, end: 20060615

REACTIONS (8)
  - BACTERIA BLOOD IDENTIFIED [None]
  - CORYNEBACTERIUM INFECTION [None]
  - HYPERSENSITIVITY [None]
  - HYPOTENSION [None]
  - MULTI-ORGAN FAILURE [None]
  - PYREXIA [None]
  - SEPSIS [None]
  - STAPHYLOCOCCAL INFECTION [None]
